FAERS Safety Report 21147758 (Version 1)
Quarter: 2022Q3

REPORT INFORMATION
  Report Type: Spontaneous
  Country: US (occurrence: US)
  Receive Date: 20220729
  Receipt Date: 20220729
  Transmission Date: 20221027
  Serious: No
  Sender: FDA-Public Use
  Company Number: US-BAYER-2022A106718

PATIENT
  Age: 73 Year
  Sex: Female

DRUGS (3)
  1. MIRALAX [Suspect]
     Active Substance: POLYETHYLENE GLYCOL 3350
     Indication: Constipation
     Dosage: 1 DF
     Route: 048
  2. PLANTAGO MAJOR LEAF [Concomitant]
     Active Substance: PLANTAGO MAJOR LEAF
     Dosage: UNK, QD
  3. PROBIOTICS NOS [Concomitant]
     Active Substance: PROBIOTICS NOS
     Dosage: UNK, QD

REACTIONS (1)
  - Diarrhoea [Unknown]
